FAERS Safety Report 22970974 (Version 2)
Quarter: 2023Q4

REPORT INFORMATION
  Report Type: Report from Study
  Country: FR (occurrence: FR)
  Receive Date: 20230922
  Receipt Date: 20231025
  Transmission Date: 20240110
  Serious: Yes (Hospitalization)
  Sender: FDA-Public Use
  Company Number: FR-BAXTER-2023BAX030811

PATIENT
  Age: 73 Year
  Sex: Female

DRUGS (6)
  1. RITUXIMAB [Suspect]
     Active Substance: RITUXIMAB
     Indication: Diffuse large B-cell lymphoma
     Dosage: EVERY 3 WEEK
     Route: 065
     Dates: start: 20230727
  2. CYCLOPHOSPHAMIDE [Suspect]
     Active Substance: CYCLOPHOSPHAMIDE
     Indication: Diffuse large B-cell lymphoma
     Dosage: CYCLOPHOSPHAMIDE WAS RESELECTED AS BAXTER MANUFACTURER
     Route: 065
     Dates: start: 20230727
  3. EPCORITAMAB [Suspect]
     Active Substance: EPCORITAMAB
     Indication: Diffuse large B-cell lymphoma
     Route: 065
     Dates: start: 20230727
  4. VINCRISTINE [Suspect]
     Active Substance: VINCRISTINE
     Indication: Diffuse large B-cell lymphoma
     Dosage: EVERY 3 WEEKS
     Route: 065
     Dates: start: 20230727
  5. DOXORUBICIN [Suspect]
     Active Substance: DOXORUBICIN
     Indication: Diffuse large B-cell lymphoma
     Dosage: DOXORUBICIN WAS DOWNGRADED FROM BAXTER TO NON-BAXTER SUSPECT DRUG
     Route: 065
     Dates: start: 20230727
  6. PREDNISONE [Suspect]
     Active Substance: PREDNISONE
     Indication: Diffuse large B-cell lymphoma
     Dosage: DAY 1-5, EVERY 3 WEEKS, EVERY 1 DAY
     Route: 065
     Dates: start: 20230727

REACTIONS (1)
  - Stomatitis [Not Recovered/Not Resolved]

NARRATIVE: CASE EVENT DATE: 20230828
